FAERS Safety Report 7083144-8 (Version None)
Quarter: 2010Q4

REPORT INFORMATION
  Report Type: 
  Country: None (occurrence: None)
  Receive Date: 20101026
  Receipt Date: 20101012
  Transmission Date: 20110411
  Serious: Yes (Life-Threatening, Hospitalization, Disabling)
  Sender: FDA-Public Use
  Company Number: 2010AP002193

PATIENT
  Age: 39 Year
  Sex: Female

DRUGS (5)
  1. CITALOPRAM HYDROBROMIDE [Suspect]
     Indication: DEPRESSION
     Dosage: QD PO
     Route: 048
  2. IMIGRAN RECOVERY (SUMATRIPTAN SUCCINATE) [Suspect]
     Indication: MIGRAINE
     Dosage: 50 MG; QD PO
     Route: 048
     Dates: start: 20070202, end: 20070202
  3. LOPERAMIDE HYDROCHLORIDE [Concomitant]
  4. ETHINYLOESTRADIOL (ETHINYLESTRADIOL) [Concomitant]
  5. LEVONORGESTREL [Concomitant]

REACTIONS (18)
  - ABASIA [None]
  - ABDOMINAL PAIN [None]
  - ANAPHYLACTIC SHOCK [None]
  - CHEST DISCOMFORT [None]
  - CHEST PAIN [None]
  - CIRCULATORY COLLAPSE [None]
  - DIARRHOEA [None]
  - DRUG INTERACTION [None]
  - DYSPNOEA [None]
  - GASTROENTERITIS [None]
  - HYPERHIDROSIS [None]
  - MALAISE [None]
  - PHARYNGEAL OEDEMA [None]
  - PHOTOSENSITIVITY REACTION [None]
  - PYREXIA [None]
  - RASH [None]
  - THROAT TIGHTNESS [None]
  - VOMITING [None]
